FAERS Safety Report 12651108 (Version 1)
Quarter: 2016Q3

REPORT INFORMATION
  Report Type: Spontaneous
  Country: US (occurrence: None)
  Receive Date: 20160812
  Receipt Date: 20160812
  Transmission Date: 20161109
  Serious: Yes (Hospitalization)
  Sender: FDA-Public Use
  Company Number: None

PATIENT
  Age: 46 Year
  Sex: Female

DRUGS (37)
  1. FUROSEMIDE. [Concomitant]
     Active Substance: FUROSEMIDE
  2. ADVAIR HFA [Concomitant]
     Active Substance: FLUTICASONE PROPIONATE\SALMETEROL XINAFOATE
  3. LORAZEPAM. [Concomitant]
     Active Substance: LORAZEPAM
  4. NIFEDIPINE. [Concomitant]
     Active Substance: NIFEDIPINE
  5. POTASSIUM CHLORIDE. [Concomitant]
     Active Substance: POTASSIUM CHLORIDE
  6. KEFLEX [Concomitant]
     Active Substance: CEPHALEXIN
  7. COUMADIN [Concomitant]
     Active Substance: WARFARIN SODIUM
  8. LIDODERM [Concomitant]
     Active Substance: LIDOCAINE
  9. PANTOPRAZOLE [Concomitant]
     Active Substance: PANTOPRAZOLE SODIUM
  10. SMZ/TMP [Concomitant]
     Active Substance: SULFAMETHOXAZOLE\TRIMETHOPRIM
  11. IPRATROPIUM [Concomitant]
     Active Substance: IPRATROPIUM
  12. AZITHROMYCIN ANHYDROUS. [Concomitant]
     Active Substance: AZITHROMYCIN ANHYDROUS
  13. TRACLEER [Concomitant]
     Active Substance: BOSENTAN
  14. TYLENOL [Concomitant]
     Active Substance: ACETAMINOPHEN
  15. ALBUTEROL. [Concomitant]
     Active Substance: ALBUTEROL
  16. CYCLOBENZAPRINE [Concomitant]
     Active Substance: CYCLOBENZAPRINE
  17. MYCOPHENOLATE [Concomitant]
     Active Substance: MYCOPHENOLIC ACID
  18. FOLBEE [Concomitant]
     Active Substance: CYANOCOBALAMIN\FOLIC ACID\PYRIDOXINE HYDROCHLORIDE
  19. TRAMADOL. [Concomitant]
     Active Substance: TRAMADOL
  20. BACTRIM DS [Concomitant]
     Active Substance: SULFAMETHOXAZOLE\TRIMETHOPRIM
  21. DOXYCYCLINE. [Concomitant]
     Active Substance: DOXYCYCLINE
  22. ALLOPURINOL. [Concomitant]
     Active Substance: ALLOPURINOL
  23. CELLCEPT [Concomitant]
     Active Substance: MYCOPHENOLATE MOFETIL\MYCOPHENOLATE MOFETIL HYDROCHLORIDE
  24. TRAZODONE [Concomitant]
     Active Substance: TRAZODONE HYDROCHLORIDE
  25. MOXIFLOXACIN. [Concomitant]
     Active Substance: MOXIFLOXACIN
  26. FLUTICASONE [Concomitant]
     Active Substance: FLUTICASONE\FLUTICASONE PROPIONATE
  27. CALMOSEPTINE [Concomitant]
     Active Substance: MENTHOL\ZINC OXIDE
  28. PREDNISONE. [Concomitant]
     Active Substance: PREDNISONE
  29. VITAMIN D [Concomitant]
     Active Substance: CHOLECALCIFEROL
  30. IMATINIB 400MG TAB SUN PHARMACEUTICALS [Suspect]
     Active Substance: IMATINIB
     Indication: LEUKAEMIA
     Route: 048
  31. ADEMPAS [Concomitant]
     Active Substance: RIOCIGUAT
  32. SPIRONOLACTONE. [Concomitant]
     Active Substance: SPIRONOLACTONE
  33. NISOLDIPINE. [Concomitant]
     Active Substance: NISOLDIPINE
  34. IRON [Concomitant]
     Active Substance: IRON
  35. PHENTERMINE. [Concomitant]
     Active Substance: PHENTERMINE
  36. SYMBICORT [Concomitant]
     Active Substance: BUDESONIDE\FORMOTEROL FUMARATE DIHYDRATE
  37. NYSTOP [Concomitant]
     Active Substance: NYSTATIN

REACTIONS (1)
  - Hospitalisation [None]

NARRATIVE: CASE EVENT DATE: 201607
